FAERS Safety Report 8421320-X (Version None)
Quarter: 2012Q2

REPORT INFORMATION
  Report Type: 
  Country: None (occurrence: None)
  Receive Date: 20120608
  Receipt Date: 20120601
  Transmission Date: 20120825
  Serious: Yes (Hospitalization)
  Sender: FDA-Public Use
  Company Number: PHHY2012CA047837

PATIENT
  Sex: Male

DRUGS (1)
  1. SANDOSTATIN LAR [Suspect]
     Indication: ACROMEGALY
     Dosage: 30 MG, QMO
     Route: 048
     Dates: start: 20110601

REACTIONS (7)
  - NECK PAIN [None]
  - FALL [None]
  - DYSPNOEA [None]
  - BACK PAIN [None]
  - PARAESTHESIA [None]
  - URTICARIA [None]
  - TACHYCARDIA [None]
